FAERS Safety Report 17482893 (Version 1)
Quarter: 2020Q1

REPORT INFORMATION
  Report Type: Spontaneous
  Country: US (occurrence: US)
  Receive Date: 20191011
  Receipt Date: 20191011
  Transmission Date: 20200409
  Serious: No
  Sender: FDA-Public Use
  Company Number: None

PATIENT
  Age: 26 Year
  Sex: Female

DRUGS (3)
  1. ALVESCO [Concomitant]
     Active Substance: CICLESONIDE
  2. COASTAL CLOUDS PREMIUM VAPOR PASSION FRUIT ORANGE GUAVA [Suspect]
     Active Substance: NICOTINE\PROPYLENE GLYCOL
  3. MARIJUANA [Suspect]
     Active Substance: CANNABIS SATIVA SUBSP. INDICA TOP

REACTIONS (4)
  - Cough [None]
  - Oropharyngeal pain [None]
  - Dysphonia [None]
  - Rhinorrhoea [None]
